FAERS Safety Report 22254651 (Version 3)
Quarter: 2023Q2

REPORT INFORMATION
  Report Type: Report from Study
  Country: US (occurrence: US)
  Receive Date: 20230426
  Receipt Date: 20230627
  Transmission Date: 20230721
  Serious: Yes (Other)
  Sender: FDA-Public Use
  Company Number: US-ABBVIE-4740856

PATIENT
  Age: 67 Year
  Sex: Female
  Weight: 84.368 kg

DRUGS (3)
  1. SKYRIZI [Suspect]
     Active Substance: RISANKIZUMAB-RZAA
     Indication: Psoriasis
     Dosage: WEEK 0
     Route: 058
     Dates: start: 20230217, end: 20230217
  2. SKYRIZI [Suspect]
     Active Substance: RISANKIZUMAB-RZAA
     Dosage: WEEK 4?STRENGTH 150 MILLIGRAMS
     Route: 058
     Dates: start: 20230317
  3. KEFLEX [Concomitant]
     Active Substance: CEPHALEXIN
     Indication: Product used for unknown indication
     Route: 065
     Dates: start: 202304

REACTIONS (3)
  - Bladder cyst [Not Recovered/Not Resolved]
  - Rash papular [Not Recovered/Not Resolved]
  - Cytology abnormal [Unknown]

NARRATIVE: CASE EVENT DATE: 20230320
